FAERS Safety Report 23866971 (Version 2)
Quarter: 2025Q2

REPORT INFORMATION
  Report Type: Report from Study
  Country: GB (occurrence: GB)
  Receive Date: 20240517
  Receipt Date: 20250403
  Transmission Date: 20250717
  Serious: Yes (Hospitalization)
  Sender: NOVARTIS
  Company Number: GB-002147023-NVSC2022GB251683

PATIENT
  Age: 37 Year
  Sex: Female

DRUGS (2)
  1. MAYZENT [Suspect]
     Active Substance: SIPONIMOD
     Indication: Secondary progressive multiple sclerosis
     Dosage: 0.25 MG, QD
     Route: 048
     Dates: start: 20211004
  2. MAYZENT [Suspect]
     Active Substance: SIPONIMOD
     Indication: Multiple sclerosis
     Dosage: 2 MG, QD
     Route: 048
     Dates: start: 20221004

REACTIONS (8)
  - Urinary tract infection [Recovered/Resolved]
  - Tonsillitis [Recovering/Resolving]
  - Oropharyngeal pain [Recovering/Resolving]
  - Odynophagia [Recovering/Resolving]
  - Skin hypopigmentation [Not Recovered/Not Resolved]
  - White blood cell count decreased [Unknown]
  - Lymphocyte count decreased [Unknown]
  - Mobility decreased [Unknown]

NARRATIVE: CASE EVENT DATE: 20221031
